FAERS Safety Report 5031379-8 (Version None)
Quarter: 2006Q2

REPORT INFORMATION
  Report Type: 
  Country: None (occurrence: None)
  Receive Date: 20060621
  Receipt Date: 20060609
  Transmission Date: 20061013
  Serious: Yes (Hospitalization)
  Sender: FDA-Public Use
  Company Number: DE-ROCHE-451025

PATIENT
  Age: 67 Year
  Sex: Male

DRUGS (2)
  1. MYCOPHENOLATE MOFETIL [Suspect]
     Route: 048
     Dates: start: 20050622, end: 20050724
  2. FK506 [Suspect]
     Route: 048
     Dates: start: 20050622

REACTIONS (4)
  - ANURIA [None]
  - DIARRHOEA [None]
  - GRAFT DYSFUNCTION [None]
  - RENAL FAILURE [None]
